FAERS Safety Report 4658671-0 (Version None)
Quarter: 2005Q2

REPORT INFORMATION
  Report Type: 
  Country: None (occurrence: None)
  Receive Date: 20050511
  Receipt Date: 20050429
  Transmission Date: 20051028
  Serious: Yes (Other)
  Sender: FDA-Public Use
  Company Number: US-NOVOPROD-243873

PATIENT
  Age: 14 Year
  Sex: Male
  Weight: 51 kg

DRUGS (1)
  1. NOVOLOG MIX 70/30 [Suspect]
     Indication: DIABETES MELLITUS INSULIN-DEPENDENT
     Dosage: 40 IU, QD + SLIDING SCALE
     Route: 058
     Dates: start: 20050322, end: 20050429

REACTIONS (5)
  - BLOOD GLUCOSE FLUCTUATION [None]
  - DRUG DISPENSING ERROR [None]
  - HYPOGLYCAEMIC SEIZURE [None]
  - MEDICATION ERROR [None]
  - PROTEINURIA [None]
